FAERS Safety Report 4571193-0 (Version None)
Quarter: 2005Q1

REPORT INFORMATION
  Report Type: 
  Country: None (occurrence: None)
  Receive Date: 20050202
  Receipt Date: 20050112
  Transmission Date: 20050727
  Serious: Yes (Hospitalization)
  Sender: FDA-Public Use
  Company Number: JP_040102551

PATIENT
  Age: 54 Year
  Sex: Female

DRUGS (8)
  1. ZYPREXA [Suspect]
     Indication: MANIA
     Dosage: 40 MG DAY
  2. HALOPERIDOL [Concomitant]
  3. LITHIUM CARBONATE [Concomitant]
  4. LEVOMEPROMAZINE [Concomitant]
  5. CLONAZEPAM [Concomitant]
  6. BIPERIDEN HYDROCHLORIDE TAB [Concomitant]
  7. PROMETHAZINE HCL [Concomitant]
  8. MAGNESIUM OXIDE [Concomitant]

REACTIONS (6)
  - DEEP VEIN THROMBOSIS [None]
  - DISEASE RECURRENCE [None]
  - DRUG INTERACTION [None]
  - HYPERPROLACTINAEMIA [None]
  - MANIA [None]
  - PULMONARY EMBOLISM [None]
